FAERS Safety Report 24053347 (Version 2)
Quarter: 2024Q3

REPORT INFORMATION
  Report Type: Spontaneous
  Country: IL (occurrence: IL)
  Receive Date: 20240705
  Receipt Date: 20240718
  Transmission Date: 20241016
  Serious: Yes (Other)
  Sender: JOHNSON AND JOHNSON
  Company Number: IL-JNJFOC-20240700520

PATIENT
  Age: 19 Year
  Sex: Female

DRUGS (1)
  1. ESKETAMINE [Suspect]
     Active Substance: ESKETAMINE
     Indication: Depression
     Dosage: TREATMENT NUMBER 16

REACTIONS (5)
  - Hallucination [Unknown]
  - Restlessness [Unknown]
  - Inappropriate affect [Unknown]
  - Nausea [Unknown]
  - Drug ineffective [Unknown]
